FAERS Safety Report 6120406-2 (Version None)
Quarter: 2009Q1

REPORT INFORMATION
  Report Type: 
  Country: None (occurrence: None)
  Receive Date: 20090317
  Receipt Date: 20090304
  Transmission Date: 20090719
  Serious: Yes (Other)
  Sender: FDA-Public Use
  Company Number: PHHY2009GB08244

PATIENT

DRUGS (1)
  1. TEGRETOL [Suspect]
     Indication: NEURALGIA
     Dosage: UNK

REACTIONS (1)
  - AMPUTATION [None]
